FAERS Safety Report 8089410-1 (Version None)
Quarter: 2012Q1

REPORT INFORMATION
  Report Type: 
  Country: None (occurrence: None)
  Receive Date: 20120128
  Receipt Date: 20110616
  Transmission Date: 20120608
  Serious: Yes (Other)
  Sender: FDA-Public Use
  Company Number: US-ABBOTT-11P-163-0723969-00

PATIENT
  Sex: Female

DRUGS (1)
  1. HUMIRA [Suspect]
     Indication: ANKYLOSING SPONDYLITIS
     Dates: start: 20070101, end: 20101201

REACTIONS (9)
  - BRONCHITIS [None]
  - CATARACT [None]
  - EYE DISORDER [None]
  - UPPER RESPIRATORY TRACT INFECTION [None]
  - PHOTOSENSITIVITY REACTION [None]
  - STAPHYLOCOCCAL INFECTION [None]
  - FUNGAL INFECTION [None]
  - CYST [None]
  - URINARY TRACT INFECTION [None]
